FAERS Safety Report 15846689 (Version 3)
Quarter: 2019Q1

REPORT INFORMATION
  Report Type: Report from Study
  Country: None (occurrence: FR)
  Receive Date: 20190121
  Receipt Date: 20190325
  Transmission Date: 20190417
  Serious: Yes (Hospitalization, Other)
  Sender: FDA-Public Use
  Company Number: FR-ABBVIE-19S-056-2627745-00

PATIENT
  Sex: Male

DRUGS (1)
  1. DUODOPA [Suspect]
     Active Substance: CARBIDOPA\LEVODOPA
     Indication: PARKINSON^S DISEASE
     Route: 050
     Dates: start: 20180416

REACTIONS (3)
  - Loss of personal independence in daily activities [Unknown]
  - Pneumonia aspiration [Not Recovered/Not Resolved]
  - Dysphagia [Unknown]
